FAERS Safety Report 5129422-0 (Version None)
Quarter: 2006Q4

REPORT INFORMATION
  Report Type: 
  Country: None (occurrence: None)
  Receive Date: 20061012
  Receipt Date: 20060918
  Transmission Date: 20070319
  Serious: Yes (Hospitalization)
  Sender: FDA-Public Use
  Company Number: S06-USA-03738-01

PATIENT
  Age: 54 Year
  Sex: Female

DRUGS (1)
  1. THYROID TAB [Suspect]
     Indication: HYPOTHYROIDISM
     Dosage: 30  MG QD PO
     Route: 048
     Dates: start: 19760101, end: 20060701

REACTIONS (2)
  - DRUG EFFECT INCREASED [None]
  - HEART RATE INCREASED [None]
